FAERS Safety Report 13928681 (Version 1)
Quarter: 2017Q3

REPORT INFORMATION
  Report Type: Spontaneous
  Country: US (occurrence: None)
  Receive Date: 20170831
  Receipt Date: 20170831
  Transmission Date: 20171127
  Serious: No
  Sender: FDA-Public Use
  Company Number: None

PATIENT
  Age: 62 Year
  Sex: Female

DRUGS (1)
  1. METHOTREXATE. [Suspect]
     Active Substance: METHOTREXATE
     Indication: UVEITIS
     Dosage: DOSE - 10MG (0.4ML)?
     Route: 058
     Dates: start: 20150828

REACTIONS (3)
  - Muscle strain [None]
  - Urticaria [None]
  - Injection site urticaria [None]

NARRATIVE: CASE EVENT DATE: 20170828
